FAERS Safety Report 10057060 (Version 3)
Quarter: 2014Q2

REPORT INFORMATION
  Report Type: Spontaneous
  Country: US (occurrence: US)
  Receive Date: 20140403
  Receipt Date: 20140516
  Transmission Date: 20141212
  Serious: Yes (Hospitalization)
  Sender: FDA-Public Use
  Company Number: US-PFIZER INC-2014094310

PATIENT
  Age: 59 Year
  Sex: Female
  Weight: 175 kg

DRUGS (6)
  1. LYRICA [Suspect]
     Indication: NEURALGIA
     Dosage: 375 MG, DAILY
     Dates: start: 201310
  2. LYRICA [Suspect]
     Indication: NECK PAIN
     Dosage: 150 MG, 2X/DAY
     Route: 048
  3. LYRICA [Suspect]
     Indication: RADICULOPATHY
  4. LYRICA [Suspect]
     Indication: HEADACHE
  5. MORPHINE [Concomitant]
     Indication: PAIN
     Dosage: 60 MG, DAILY
  6. MORPHINE [Concomitant]
     Indication: PAIN
     Dosage: 30 MG, EVERY 4 HRS

REACTIONS (2)
  - Off label use [Recovering/Resolving]
  - Arthropathy [Recovering/Resolving]
